FAERS Safety Report 24557625 (Version 2)
Quarter: 2024Q4

REPORT INFORMATION
  Report Type: Spontaneous
  Country: FR (occurrence: FR)
  Receive Date: 20241028
  Receipt Date: 20241115
  Transmission Date: 20250115
  Serious: Yes (Life-Threatening)
  Sender: MYLAN
  Company Number: None

PATIENT
  Age: 67 Year
  Sex: Female

DRUGS (3)
  1. ACETAMINOPHEN [Suspect]
     Active Substance: ACETAMINOPHEN
     Indication: Self-medication
     Dosage: UNK
     Route: 048
     Dates: start: 2024, end: 20241010
  2. IBUPROFEN [Suspect]
     Active Substance: IBUPROFEN
     Indication: Self-medication
     Dosage: UNK
     Route: 048
     Dates: start: 2024, end: 20241010
  3. AUGMENTIN [Suspect]
     Active Substance: AMOXICILLIN\CLAVULANATE POTASSIUM
     Indication: Sinusitis
     Dosage: UNK
     Route: 048
     Dates: start: 20240928, end: 20241004

REACTIONS (1)
  - Hepatitis fulminant [Recovering/Resolving]

NARRATIVE: CASE EVENT DATE: 20241010
